FAERS Safety Report 7427720-9 (Version None)
Quarter: 2011Q2

REPORT INFORMATION
  Report Type: 
  Country: None (occurrence: None)
  Receive Date: 20110411
  Receipt Date: 20110404
  Transmission Date: 20111010
  Serious: Yes (Death)
  Sender: FDA-Public Use
  Company Number: UTC-006126

PATIENT
  Age: 87 Year
  Sex: Female

DRUGS (3)
  1. TYVASO [Suspect]
     Dosage: 216 MCG (54 MCG, 4 IN 1 D), INHALATION
     Route: 055
     Dates: start: 20101001
  2. COUMADIN [Concomitant]
  3. TRACLEER [Concomitant]

REACTIONS (1)
  - DEATH [None]
